FAERS Safety Report 9681094 (Version 3)
Quarter: 2013Q4

REPORT INFORMATION
  Report Type: Report from Study
  Country: KR (occurrence: KR)
  Receive Date: 20131111
  Receipt Date: 20131218
  Transmission Date: 20140711
  Serious: Yes (Hospitalization)
  Sender: FDA-Public Use
  Company Number: KR-ASTRAZENECA-2013SE74415

PATIENT
  Age: 25865 Day
  Sex: Male
  Weight: 74 kg

DRUGS (5)
  1. NEXIUM [Suspect]
     Indication: GASTRIC ULCER
     Route: 042
     Dates: start: 20131002, end: 20131005
  2. LAMINA G [Suspect]
     Indication: GASTRIC ULCER
     Route: 048
     Dates: start: 20131002, end: 20131006
  3. ULCERMIN [Suspect]
     Indication: GASTRIC ULCER
     Route: 048
     Dates: start: 20131002
  4. LANSTON LFDT [Suspect]
     Indication: GASTRIC ULCER
     Route: 048
     Dates: start: 20131005
  5. AZD6140 CODE NOT BROKEN [Suspect]
     Indication: PERIPHERAL ARTERIAL OCCLUSIVE DISEASE
     Route: 048
     Dates: start: 20130313, end: 20131002

REACTIONS (1)
  - Gastric ulcer [Recovered/Resolved]
